FAERS Safety Report 9373039 (Version 1)
Quarter: 2013Q2

REPORT INFORMATION
  Report Type: Spontaneous
  Country: FR (occurrence: None)
  Receive Date: 20130624
  Receipt Date: 20130624
  Transmission Date: 20140414
  Serious: Yes (Hospitalization, Other)
  Sender: FDA-Public Use
  Company Number: 2013P1008738

PATIENT
  Age: 68 Year
  Sex: Female

DRUGS (3)
  1. AMOXICILLIN + CLAVULANATE POTASSIUM [Suspect]
     Indication: BRONCHITIS
  2. ERYTHROMYCIN [Suspect]
     Indication: BRONCHITIS
  3. MOXIFLOXACIN [Suspect]
     Indication: BRONCHITIS

REACTIONS (7)
  - Drug reaction with eosinophilia and systemic symptoms [None]
  - Somnolence [None]
  - Vomiting [None]
  - Tachypnoea [None]
  - Diabetic ketoacidosis [None]
  - Left ventricular dysfunction [None]
  - Type 1 diabetes mellitus [None]
